FAERS Safety Report 6301144-X (Version None)
Quarter: 2009Q3

REPORT INFORMATION
  Report Type: 
  Country: None (occurrence: None)
  Receive Date: 20090807
  Receipt Date: 20090728
  Transmission Date: 20100115
  Serious: Yes (Other)
  Sender: FDA-Public Use
  Company Number: US-JNJFOC-20090601700

PATIENT
  Sex: Female
  Weight: 65.77 kg

DRUGS (4)
  1. REMICADE [Suspect]
     Route: 042
  2. REMICADE [Suspect]
     Indication: CROHN'S DISEASE
     Route: 042
  3. SYNTHROID [Concomitant]
  4. IMURAN [Concomitant]

REACTIONS (3)
  - COLON CANCER [None]
  - MALIGNANT MELANOMA [None]
  - MYCOBACTERIUM AVIUM COMPLEX INFECTION [None]
